FAERS Safety Report 22364951 (Version 2)
Quarter: 2023Q2

REPORT INFORMATION
  Report Type: Spontaneous
  Country: TW (occurrence: TW)
  Receive Date: 20230525
  Receipt Date: 20230613
  Transmission Date: 20230721
  Serious: Yes (Other)
  Sender: FDA-Public Use
  Company Number: TW-BAYER-2023A071974

PATIENT
  Age: 55 Year
  Sex: Female

DRUGS (1)
  1. EYLEA [Suspect]
     Active Substance: AFLIBERCEPT
     Indication: Neovascular age-related macular degeneration
     Dosage: UNK, SOLUTION FOR INJECTION, STRENGTH: 40MG/ML
     Route: 031

REACTIONS (1)
  - Retinal oedema [Not Recovered/Not Resolved]
